FAERS Safety Report 7293024-0 (Version None)
Quarter: 2011Q1

REPORT INFORMATION
  Report Type: 
  Country: None (occurrence: None)
  Receive Date: 20110203
  Receipt Date: 20110124
  Transmission Date: 20110831
  Serious: Yes (Hospitalization)
  Sender: FDA-Public Use
  Company Number: 024713

PATIENT
  Sex: Female
  Weight: 58.5 kg

DRUGS (6)
  1. LEVETIRACETAM [Suspect]
     Indication: COMPLEX PARTIAL SEIZURES
     Dosage: (1000 MG BID ORAL)
     Route: 048
     Dates: start: 20070627
  2. VALPROATE SODIUM [Suspect]
     Indication: COMPLEX PARTIAL SEIZURES
     Dosage: (2100 MG ORAL)
     Route: 048
     Dates: end: 20070821
  3. PHENOBARBITAL TAB [Concomitant]
  4. CLOBAZAM [Concomitant]
  5. TOPIRAMATE [Concomitant]
  6. ZONISAMIDE [Concomitant]

REACTIONS (7)
  - BACK DISORDER [None]
  - ASTHENIA [None]
  - AMMONIA INCREASED [None]
  - ANTICONVULSANT DRUG LEVEL INCREASED [None]
  - MUSCULAR WEAKNESS [None]
  - TOXIC ENCEPHALOPATHY [None]
  - PSYCHOMOTOR RETARDATION [None]
